FAERS Safety Report 22151137 (Version 2)
Quarter: 2023Q2

REPORT INFORMATION
  Report Type: Spontaneous
  Country: BR (occurrence: BR)
  Receive Date: 20230329
  Receipt Date: 20230410
  Transmission Date: 20230722
  Serious: Yes (Hospitalization, Other)
  Sender: FDA-Public Use
  Company Number: BR-009507513-2303BRA009169

PATIENT
  Age: 86 Year
  Sex: Female

DRUGS (2)
  1. PEMBROLIZUMAB [Suspect]
     Active Substance: PEMBROLIZUMAB
     Indication: Squamous cell carcinoma
     Dosage: UNK
     Dates: start: 20210318, end: 20210729
  2. OXYGEN [Concomitant]
     Active Substance: OXYGEN
     Dosage: UNK

REACTIONS (12)
  - Pulmonary embolism [Unknown]
  - COVID-19 [Unknown]
  - Hypothyroidism [Unknown]
  - Magnetic resonance imaging head abnormal [Not Recovered/Not Resolved]
  - Pruritus [Recovered/Resolved]
  - Constipation [Recovered/Resolved]
  - Rash [Not Recovered/Not Resolved]
  - Arthralgia [Recovering/Resolving]
  - Metabolic acidosis [Unknown]
  - Emphysema [Unknown]
  - Ill-defined disorder [Unknown]
  - Inappropriate schedule of product administration [Unknown]

NARRATIVE: CASE EVENT DATE: 20210101
